FAERS Safety Report 4560694-7 (Version None)
Quarter: 2005Q1

REPORT INFORMATION
  Report Type: 
  Country: None (occurrence: None)
  Receive Date: 20050121
  Receipt Date: 20050111
  Transmission Date: 20050727
  Serious: No
  Sender: FDA-Public Use
  Company Number: 2005CG00102

PATIENT
  Age: 4 Year
  Sex: Female

DRUGS (2)
  1. OMEPRAZOLE [Suspect]
     Indication: GASTROOESOPHAGEAL REFLUX DISEASE
     Dates: start: 20000101
  2. GAVISCON [Concomitant]

REACTIONS (7)
  - CONGENITAL POIKILODERMA [None]
  - ERYTHROSIS [None]
  - HARTNUP DISEASE [None]
  - PHOTOSENSITIVITY REACTION [None]
  - POIKILODERMA [None]
  - SKIN MALFORMATION [None]
  - SYSTEMIC LUPUS ERYTHEMATOSUS [None]
